FAERS Safety Report 4431027-1 (Version None)
Quarter: 2004Q3

REPORT INFORMATION
  Report Type: 
  Country: None (occurrence: None)
  Receive Date: 20040824
  Receipt Date: 20031217
  Transmission Date: 20050211
  Serious: No
  Sender: FDA-Public Use
  Company Number: US-BRISTOL-MYERS SQUIBB COMPANY-12460358

PATIENT
  Sex: Male

DRUGS (1)
  1. MEGACE [Suspect]

REACTIONS (1)
  - GYNAECOMASTIA [None]
